FAERS Safety Report 22321391 (Version 1)
Quarter: 2023Q2

REPORT INFORMATION
  Report Type: Spontaneous
  Country: CA (occurrence: CA)
  Receive Date: 20230515
  Receipt Date: 20230515
  Transmission Date: 20230722
  Serious: Yes (Hospitalization, Other)
  Sender: FDA-Public Use
  Company Number: CA-ORGANON-O2305CAN001304

PATIENT
  Sex: Female

DRUGS (6)
  1. FOSAMAX [Suspect]
     Active Substance: ALENDRONATE SODIUM
     Indication: Osteoporosis prophylaxis
     Dosage: UNK
     Route: 065
  2. PROLIA [Suspect]
     Active Substance: DENOSUMAB
     Dosage: 1 DOSAGE FORM, ONCE; DOSAGE FORM: SOLUTION SUBCUTANEOUS
     Route: 051
  3. PROLIA [Suspect]
     Active Substance: DENOSUMAB
     Dosage: 1 DOSAGE FORM, ONCE; DOSAGE FORM: SOLUTION SUBCUTANEOUS
     Route: 051
  4. ASPIRIN [Concomitant]
     Active Substance: ASPIRIN
     Dosage: UNK; DOSAGE FORM: NOT SPECIFIED
     Route: 065
  5. CALCIUM [Concomitant]
     Active Substance: CALCIUM
     Dosage: UNK; DOSAGE FORM: NOT SPECIFIED
     Route: 065
  6. CHOLECALCIFEROL [Concomitant]
     Active Substance: CHOLECALCIFEROL
     Dosage: UNK; DOSAGE FORM: NOT SPECIFIED
     Route: 065

REACTIONS (10)
  - Abdominal pain upper [Not Recovered/Not Resolved]
  - Cystitis [Not Recovered/Not Resolved]
  - Essential thrombocythaemia [Not Recovered/Not Resolved]
  - Fall [Not Recovered/Not Resolved]
  - Fatigue [Not Recovered/Not Resolved]
  - Platelet count increased [Not Recovered/Not Resolved]
  - Radial nerve palsy [Not Recovered/Not Resolved]
  - Red blood cell count increased [Not Recovered/Not Resolved]
  - Splenomegaly [Not Recovered/Not Resolved]
  - Wrist fracture [Not Recovered/Not Resolved]
